FAERS Safety Report 4609434-3 (Version None)
Quarter: 2005Q1

REPORT INFORMATION
  Report Type: 
  Country: None (occurrence: None)
  Receive Date: 20050314
  Receipt Date: 20050303
  Transmission Date: 20050727
  Serious: Yes (Other)
  Sender: FDA-Public Use
  Company Number: 2005034820

PATIENT
  Age: 70 Year
  Sex: Male
  Weight: 65 kg

DRUGS (1)
  1. ATORVASTATIN CALCIUM [Suspect]
     Indication: HYPERCHOLESTEROLAEMIA
     Dosage: 10 MG (10 MG, 1 IN 1 D),ORAL
     Route: 048
     Dates: start: 19970101, end: 19990601

REACTIONS (12)
  - COORDINATION ABNORMAL [None]
  - DIFFICULTY IN WALKING [None]
  - GAIT DISTURBANCE [None]
  - LIMB INJURY [None]
  - MOBILITY DECREASED [None]
  - MUSCLE SPASMS [None]
  - NAIL BED BLEEDING [None]
  - NAIL DISORDER [None]
  - NEUROPATHY PERIPHERAL [None]
  - TOE DEFORMITY [None]
  - TRANSAMINASES INCREASED [None]
  - TREMOR [None]
